FAERS Safety Report 25907190 (Version 1)
Quarter: 2025Q4

REPORT INFORMATION
  Report Type: Spontaneous
  Country: US (occurrence: US)
  Receive Date: 20251010
  Receipt Date: 20251010
  Transmission Date: 20260117
  Serious: Yes (Other)
  Sender: NOVO NORDISK
  Company Number: US-NOVOPROD-1533062

PATIENT
  Age: 46 Year
  Sex: Female

DRUGS (4)
  1. WEGOVY [Suspect]
     Active Substance: SEMAGLUTIDE
     Indication: Weight control
     Dosage: 0.25 MG
     Route: 058
     Dates: start: 20250613, end: 20250713
  2. WEGOVY [Suspect]
     Active Substance: SEMAGLUTIDE
     Indication: Autoimmune disorder
     Dosage: 0.5 MG
     Route: 058
     Dates: start: 202509, end: 20250919
  3. WEGOVY [Suspect]
     Active Substance: SEMAGLUTIDE
     Indication: Lung disorder
     Dosage: 0.25 MG (DOSE DECREASED)
     Route: 058
     Dates: start: 202509, end: 202509
  4. WEGOVY [Suspect]
     Active Substance: SEMAGLUTIDE
     Indication: Cardiac disorder
     Dosage: 0.5 MG
     Route: 058
     Dates: start: 20250713, end: 20250813

REACTIONS (3)
  - Postural orthostatic tachycardia syndrome [Unknown]
  - Condition aggravated [Unknown]
  - Abnormal loss of weight [Not Recovered/Not Resolved]

NARRATIVE: CASE EVENT DATE: 20250101
